FAERS Safety Report 7253368-5 (Version None)
Quarter: 2011Q1

REPORT INFORMATION
  Report Type: 
  Country: None (occurrence: None)
  Receive Date: 20110129
  Receipt Date: 20100323
  Transmission Date: 20110831
  Serious: Yes (Hospitalization)
  Sender: FDA-Public Use
  Company Number: US-ABBOTT-10P-163-0634476-00

PATIENT

DRUGS (2)
  1. HUMIRA [Suspect]
     Dates: start: 20090101
  2. HUMIRA [Suspect]
     Indication: CROHN'S DISEASE
     Route: 058
     Dates: start: 20080101, end: 20090101

REACTIONS (7)
  - ABDOMINAL PAIN [None]
  - DYSPEPSIA [None]
  - HICCUPS [None]
  - ARTHRALGIA [None]
  - DIARRHOEA [None]
  - DRUG EFFECT DECREASED [None]
  - INFLAMMATORY BOWEL DISEASE [None]
